FAERS Safety Report 4697493-1 (Version None)
Quarter: 2005Q2

REPORT INFORMATION
  Report Type: 
  Country: None (occurrence: None)
  Receive Date: 20050621
  Receipt Date: 20050606
  Transmission Date: 20051028
  Serious: Yes (Other)
  Sender: FDA-Public Use
  Company Number: USA050392190

PATIENT
  Sex: Male

DRUGS (3)
  1. ALIMTA [Suspect]
     Indication: NON-SMALL CELL LUNG CANCER
     Dates: start: 20040101
  2. KYTRIL [Concomitant]
  3. DEXAMETHASONE [Concomitant]

REACTIONS (1)
  - HYPERSENSITIVITY [None]
